FAERS Safety Report 9228812 (Version 1)
Quarter: 2013Q2

REPORT INFORMATION
  Report Type: Spontaneous
  Country: FR (occurrence: FR)
  Receive Date: 20130412
  Receipt Date: 20130412
  Transmission Date: 20140414
  Serious: Yes (Hospitalization, Other)
  Sender: FDA-Public Use
  Company Number: FR-009507513-1012FRA00089B1

PATIENT
  Sex: Male
  Weight: 3.12 kg

DRUGS (3)
  1. ISENTRESS [Suspect]
     Indication: HIV INFECTION
     Dosage: 400 MG, BID
     Route: 064
     Dates: start: 20090918
  2. COMBIVIR [Concomitant]
     Indication: HIV INFECTION
     Route: 064
     Dates: start: 20080922
  3. LOVENOX [Concomitant]
     Dosage: 0.4 ML, QD
     Route: 064
     Dates: start: 201005

REACTIONS (2)
  - Premature baby [Recovered/Resolved]
  - Foetal exposure during pregnancy [Recovered/Resolved]
